FAERS Safety Report 16839705 (Version 1)
Quarter: 2019Q3

REPORT INFORMATION
  Report Type: Spontaneous
  Country: ES (occurrence: ES)
  Receive Date: 20190923
  Receipt Date: 20190923
  Transmission Date: 20191005
  Serious: Yes (Other)
  Sender: FDA-Public Use
  Company Number: ES-AMGEN-ESPSP2019154411

PATIENT
  Age: 2 Year
  Sex: Female

DRUGS (5)
  1. NEUPOGEN [Suspect]
     Active Substance: FILGRASTIM
     Indication: PRODUCT USED FOR UNKNOWN INDICATION
     Dosage: 15 MICROGRAM/KILOGRAM, QD X 14 D
     Route: 058
  2. NEUPOGEN [Suspect]
     Active Substance: FILGRASTIM
     Dosage: 60 MICROGRAM/KILOGRAM (OVER 90 MINUTES)
     Route: 058
  3. NEUPOGEN [Suspect]
     Active Substance: FILGRASTIM
     Dosage: 5 MICROGRAM/KILOGRAM, QD (60 MICROGRAM, 14 DAYS)
     Route: 058
  4. NEUPOGEN [Suspect]
     Active Substance: FILGRASTIM
     Dosage: 0.3 MILLIGRAM PER MILLILITRE (30 MU)
     Route: 058
  5. NEUPOGEN [Suspect]
     Active Substance: FILGRASTIM
     Dosage: 10 MICROGRAM/KILOGRAM, QD (120 MICROGRAM, FOR 4 DAYS)
     Route: 058

REACTIONS (3)
  - Ovarian germ cell endodermal sinus tumour [Unknown]
  - Neutrophil count decreased [Unknown]
  - Drug hypersensitivity [Unknown]
